FAERS Safety Report 9338566 (Version 1)
Quarter: 2013Q2

REPORT INFORMATION
  Report Type: Spontaneous
  Country: GB (occurrence: GB)
  Receive Date: 20130610
  Receipt Date: 20130610
  Transmission Date: 20140414
  Serious: Yes (Death, Other)
  Sender: FDA-Public Use
  Company Number: GB-ROXANE LABORATORIES, INC.-2013-RO-00914RO

PATIENT
  Age: 37 Year
  Sex: Female

DRUGS (5)
  1. METHADONE [Suspect]
     Indication: DRUG WITHDRAWAL MAINTENANCE THERAPY
  2. CODEINE SULFATE [Suspect]
  3. DIAZEPAM [Suspect]
  4. PARACETAMOL [Suspect]
  5. TEMAZEPAM [Suspect]

REACTIONS (6)
  - Pancreatitis acute [Fatal]
  - Pancreatitis haemorrhagic [Fatal]
  - Pancreatitis necrotising [Fatal]
  - Hepatic steatosis [Unknown]
  - Hepatic cirrhosis [Unknown]
  - Pulmonary congestion [Unknown]
